FAERS Safety Report 5709122-6 (Version None)
Quarter: 2008Q2

REPORT INFORMATION
  Report Type: 
  Country: None (occurrence: None)
  Receive Date: 20080416
  Receipt Date: 20080416
  Transmission Date: 20081010
  Serious: No
  Sender: FDA-Public Use
  Company Number: None

PATIENT
  Age: 60 Year
  Sex: Female
  Weight: 113.3993 kg

DRUGS (2)
  1. PAXIL [Suspect]
     Indication: STRESS
     Dosage: ONE PILL DAILY PO
     Route: 048
     Dates: start: 20041221, end: 20080101
  2. VIOXX [Suspect]
     Indication: PAIN
     Dates: start: 19970719, end: 20000110

REACTIONS (9)
  - AGGRESSION [None]
  - ANHEDONIA [None]
  - CRYING [None]
  - DEPRESSION [None]
  - EMOTIONAL DISORDER [None]
  - FEELING ABNORMAL [None]
  - FLAT AFFECT [None]
  - ILL-DEFINED DISORDER [None]
  - LIBIDO DECREASED [None]
